FAERS Safety Report 9394364 (Version 3)
Quarter: 2013Q3

REPORT INFORMATION
  Report Type: Spontaneous
  Country: FR (occurrence: FR)
  Receive Date: 20130711
  Receipt Date: 20130917
  Transmission Date: 20140515
  Serious: Yes (Death, Hospitalization, Other)
  Sender: FDA-Public Use
  Company Number: FR-RANBAXY-2013RR-71059

PATIENT
  Age: 81 Year
  Sex: Male

DRUGS (14)
  1. PAROXETINE [Suspect]
     Indication: PRODUCT USED FOR UNKNOWN INDICATION
     Dosage: 20 MG/DAY
     Route: 048
  2. PARACETAMOL [Suspect]
     Dosage: 3 G/DAY
     Route: 048
  3. FUROSEMIDE SANDOZ [Suspect]
     Indication: CARDIAC FAILURE
     Dosage: 40 MG, BID
     Route: 065
  4. ATORVASTATIN [Suspect]
     Indication: PRODUCT USED FOR UNKNOWN INDICATION
     Dosage: 1 DF/DAY
     Route: 048
  5. ALLOPURINOL [Suspect]
     Indication: PRODUCT USED FOR UNKNOWN INDICATION
     Dosage: 1 DF/DAY
     Route: 048
  6. OMEPRAZOLE [Suspect]
     Indication: PRODUCT USED FOR UNKNOWN INDICATION
     Dosage: 20 MG/DAY
     Route: 048
  7. FUROSEMIDE TEVA 40 MG [Suspect]
     Indication: CARDIAC FAILURE
     Dosage: 40 MG, BID
     Route: 048
     Dates: start: 20130516, end: 20130608
  8. SPIRONOLACTONE [Suspect]
     Indication: PRODUCT USED FOR UNKNOWN INDICATION
     Dosage: 50 MG/DAY
     Route: 048
  9. ALFUZOSINE [Suspect]
     Indication: PRODUCT USED FOR UNKNOWN INDICATION
     Dosage: 10 MG/DAY
     Route: 048
  10. ZOLPIDEM [Suspect]
     Indication: PRODUCT USED FOR UNKNOWN INDICATION
     Dosage: 10 MG/DAY
     Route: 048
  11. NOVOMIX [Suspect]
     Indication: DIABETES MELLITUS
     Dosage: 40 U IN THE MORNING, 18 U IN THE EVENING
     Route: 058
  12. IRBESARTAN [Suspect]
     Indication: PRODUCT USED FOR UNKNOWN INDICATION
     Dosage: 75 MG/DAY
     Route: 048
  13. DIFFU K [Suspect]
     Indication: PRODUCT USED FOR UNKNOWN INDICATION
     Dosage: 1 DF, BID
     Route: 048
  14. DICLOFENAC [Concomitant]
     Indication: PRODUCT USED FOR UNKNOWN INDICATION
     Dosage: UNK
     Route: 065

REACTIONS (5)
  - Acute pulmonary oedema [Fatal]
  - Cardiac failure [Fatal]
  - Blood creatinine increased [Unknown]
  - Fall [Unknown]
  - Hyponatraemia [Unknown]
